FAERS Safety Report 13492715 (Version 3)
Quarter: 2017Q2

REPORT INFORMATION
  Report Type: Report from Study
  Country: US (occurrence: US)
  Receive Date: 20170427
  Receipt Date: 20170620
  Transmission Date: 20170830
  Serious: No
  Sender: FDA-Public Use
  Company Number: US-AMGEN-USASL2017060408

PATIENT
  Age: 51 Year
  Sex: Female

DRUGS (1)
  1. ENBREL [Suspect]
     Active Substance: ETANERCEPT
     Indication: PSORIASIS
     Dosage: 50 MG, QWK
     Route: 065

REACTIONS (7)
  - Therapy non-responder [Unknown]
  - Blood pressure increased [Unknown]
  - Arthralgia [Unknown]
  - Pain [Unknown]
  - Gastric disorder [Unknown]
  - Viral upper respiratory tract infection [Unknown]
  - Psoriasis [Unknown]
